FAERS Safety Report 10888995 (Version 3)
Quarter: 2015Q1

REPORT INFORMATION
  Report Type: Spontaneous
  Country: US (occurrence: US)
  Receive Date: 20150305
  Receipt Date: 20150320
  Transmission Date: 20150721
  Serious: Yes (Other)
  Sender: FDA-Public Use
  Company Number: US-TEVA-545824USA

PATIENT
  Age: 19 Year
  Sex: Female
  Weight: 48.12 kg

DRUGS (2)
  1. PLAN B ONE-STEP [Suspect]
     Active Substance: LEVONORGESTREL
     Dosage: 1.5 MILLIGRAM DAILY;
     Route: 048
     Dates: start: 20141216, end: 20141216
  2. PLAN B ONE-STEP [Suspect]
     Active Substance: LEVONORGESTREL
     Indication: POST COITAL CONTRACEPTION
     Dosage: 1.5 MILLIGRAM DAILY;
     Route: 048
     Dates: start: 201411, end: 201411

REACTIONS (6)
  - Fatigue [Recovered/Resolved]
  - Weight increased [Recovered/Resolved]
  - Chlamydial infection [Recovered/Resolved]
  - Abdominal distension [Recovered/Resolved]
  - Breast enlargement [Recovered/Resolved]
  - Menstruation delayed [Recovered/Resolved]

NARRATIVE: CASE EVENT DATE: 201412
